FAERS Safety Report 9788910 (Version 3)
Quarter: 2014Q1

REPORT INFORMATION
  Report Type: Spontaneous
  Country: JP (occurrence: JP)
  Receive Date: 20131230
  Receipt Date: 20140122
  Transmission Date: 20141002
  Serious: Yes (Death)
  Sender: FDA-Public Use
  Company Number: JP-GLAXOSMITHKLINE-B0955703A

PATIENT
  Age: 85 Year
  Sex: Male

DRUGS (3)
  1. VALTREX [Suspect]
     Indication: HERPES ZOSTER
     Dosage: 500MG PER DAY
     Route: 048
     Dates: start: 20121228, end: 20130103
  2. CALONAL [Concomitant]
     Indication: PAIN
     Dosage: 100MG THREE TIMES PER DAY
     Route: 048
     Dates: start: 20121228, end: 20130103
  3. GENTAMICIN SULFATE [Concomitant]
     Indication: RASH
     Route: 061
     Dates: start: 20121228, end: 20130103

REACTIONS (5)
  - Encephalitis viral [Unknown]
  - Toxic encephalopathy [Unknown]
  - Renal failure [Fatal]
  - Nervous system disorder [Unknown]
  - Confusional state [Unknown]
